FAERS Safety Report 19829254 (Version 1)
Quarter: 2021Q3

REPORT INFORMATION
  Report Type: Report from Study
  Country: NL (occurrence: NL)
  Receive Date: 20210914
  Receipt Date: 20210914
  Transmission Date: 20211014
  Serious: Yes (Hospitalization, Other)
  Sender: FDA-Public Use
  Company Number: NL-MYLANLABS-2021M1061551

PATIENT
  Age: 64 Year
  Sex: Male
  Weight: 74 kg

DRUGS (15)
  1. AMITRIPTYLINE [Suspect]
     Active Substance: AMITRIPTYLINE
     Indication: NEURALGIA
     Dosage: 25 MILLIGRAM, QD
     Route: 065
     Dates: start: 20200401, end: 20210305
  2. ATORVASTATINE                      /01326101/ [Concomitant]
     Active Substance: ATORVASTATIN
     Indication: DYSLIPIDAEMIA
     Dosage: 40 MILLIGRAM, QD
     Route: 065
     Dates: start: 20190801, end: 20210305
  3. METFORMINE                         /00082701/ [Concomitant]
     Active Substance: METFORMIN HYDROCHLORIDE
     Indication: PRODUCT USED FOR UNKNOWN INDICATION
     Dosage: 1500 MILLIGRAM, QD
     Route: 065
  4. GLICAZIDA [Concomitant]
     Active Substance: GLICLAZIDE
     Indication: PRODUCT USED FOR UNKNOWN INDICATION
     Dosage: UNK
     Route: 065
  5. ABL001 [Suspect]
     Active Substance: ASCIMINIB
     Indication: CHRONIC MYELOID LEUKAEMIA
     Dosage: 400 MILLIGRAM
     Route: 048
     Dates: start: 20190926, end: 20210304
  6. THIAMINE. [Concomitant]
     Active Substance: THIAMINE
     Indication: PRODUCT USED FOR UNKNOWN INDICATION
     Dosage: 100 MILLIGRAM, QD
     Route: 065
  7. BUPRENORPHINE. [Concomitant]
     Active Substance: BUPRENORPHINE
     Indication: PRODUCT USED FOR UNKNOWN INDICATION
     Dosage: 20 MICROGRAM/ U PATCH FOR 7 DAYS
     Route: 065
  8. TEMAZEPAM. [Concomitant]
     Active Substance: TEMAZEPAM
     Indication: PRODUCT USED FOR UNKNOWN INDICATION
     Dosage: 20 MILLIGRAM, QD
     Route: 065
  9. METOPROLOL. [Concomitant]
     Active Substance: METOPROLOL
     Indication: PRODUCT USED FOR UNKNOWN INDICATION
     Dosage: 50 MILLIGRAM, QD
     Route: 065
  10. PANTOPRAZOLE [Concomitant]
     Active Substance: PANTOPRAZOLE
     Indication: PRODUCT USED FOR UNKNOWN INDICATION
     Dosage: 20 MILLIGRAM, QD
     Route: 065
  11. CHOLECALCIFEROL [Concomitant]
     Active Substance: CHOLECALCIFEROL
     Indication: PRODUCT USED FOR UNKNOWN INDICATION
     Dosage: 5600 E 1/7 DAYS UNK
     Route: 065
  12. ASCAL                              /00002702/ [Concomitant]
     Active Substance: ASPIRIN CALCIUM
     Indication: PRODUCT USED FOR UNKNOWN INDICATION
     Dosage: 80 MILLIGRAM, QD
     Route: 065
  13. BACLOFEN. [Suspect]
     Active Substance: BACLOFEN
     Indication: NEURALGIA
     Dosage: 10 MILLIGRAM, QD
     Route: 065
     Dates: start: 20210224, end: 20210305
  14. ABL001 [Suspect]
     Active Substance: ASCIMINIB
     Dosage: 400 MILLIGRAM, QD
     Route: 065
  15. PREGABALIN. [Concomitant]
     Active Substance: PREGABALIN
     Indication: NEURALGIA
     Dosage: 300 MILLIGRAM, QD
     Route: 065
     Dates: start: 20191101, end: 20210305

REACTIONS (10)
  - Hepatitis E [Recovered/Resolved]
  - Walking disability [Unknown]
  - Encephalopathy [Recovered/Resolved]
  - Abdominal pain upper [Unknown]
  - Bradyphrenia [Unknown]
  - Diabetic neuropathy [Unknown]
  - Drug-induced liver injury [Unknown]
  - Pyrexia [Recovered/Resolved]
  - Urinary retention [Unknown]
  - Hypoglycaemia [Unknown]

NARRATIVE: CASE EVENT DATE: 20210305
